FAERS Safety Report 6147648-4 (Version None)
Quarter: 2009Q2

REPORT INFORMATION
  Report Type: 
  Country: None (occurrence: None)
  Receive Date: 20090408
  Receipt Date: 20090403
  Transmission Date: 20091009
  Serious: Yes (Other)
  Sender: FDA-Public Use
  Company Number: US-JNJFOC-20090401809

PATIENT
  Age: 6 Decade
  Sex: Female
  Weight: 90.72 kg

DRUGS (8)
  1. RISPERDAL CONSTA [Suspect]
     Indication: SCHIZOAFFECTIVE DISORDER
     Route: 030
  2. UNKNOWN DRUG [Concomitant]
     Indication: DIABETES MELLITUS
     Route: 065
  3. VITAMIN D [Concomitant]
     Indication: VITAMIN SUPPLEMENTATION
     Route: 048
  4. PROCRIT [Concomitant]
     Route: 058
  5. LISINOPRIL [Concomitant]
     Route: 048
  6. LANTUS [Concomitant]
     Indication: DIABETES MELLITUS
     Route: 058
  7. LEVOTHYROXINE SODIUM [Concomitant]
     Indication: HYPOTHYROIDISM
     Route: 048
  8. COGENTIN [Concomitant]
     Route: 048

REACTIONS (1)
  - RENAL FAILURE [None]
